FAERS Safety Report 7361264-8 (Version None)
Quarter: 2011Q1

REPORT INFORMATION
  Report Type: 
  Country: None (occurrence: None)
  Receive Date: 20110318
  Receipt Date: 20110315
  Transmission Date: 20110831
  Serious: Yes (Life-Threatening)
  Sender: FDA-Public Use
  Company Number: PHHY2011US16583

PATIENT
  Sex: Female

DRUGS (14)
  1. RECLAST [Suspect]
     Indication: OSTEOPOROSIS
     Dosage: 5 MG/100 ML ONCE YEARLY
     Route: 042
     Dates: start: 20101202
  2. PROTONIX [Concomitant]
     Dosage: DAILY
     Route: 048
  3. METAMUCIL-2 [Concomitant]
  4. GLUCOSAMINE [Concomitant]
  5. FISH OIL [Concomitant]
     Dosage: TWICE DAILY
     Route: 048
  6. VITAMIN D [Concomitant]
     Dosage: TWICE DAILY
  7. MUCINEX [Concomitant]
     Dosage: DAILY
     Route: 048
  8. STOOL SOFTENER [Concomitant]
  9. CALCIUM [Concomitant]
     Dosage: UNK
  10. ASPIRIN [Concomitant]
     Dosage: DAILY
     Route: 048
  11. ALBUTEROL [Concomitant]
  12. DOXYCYCLINE [Concomitant]
  13. BLUE-EMU [Concomitant]
  14. MAGNESIUM [Concomitant]

REACTIONS (11)
  - BLOOD PARATHYROID HORMONE INCREASED [None]
  - BREAST PAIN [None]
  - INFLUENZA LIKE ILLNESS [None]
  - BRONCHITIS [None]
  - CHEST DISCOMFORT [None]
  - ABDOMINAL PAIN [None]
  - DIZZINESS [None]
  - PARAESTHESIA [None]
  - VITAMIN D INCREASED [None]
  - BALANCE DISORDER [None]
  - PAIN IN EXTREMITY [None]
